FAERS Safety Report 15485823 (Version 2)
Quarter: 2018Q4

REPORT INFORMATION
  Report Type: Spontaneous
  Country: US (occurrence: US)
  Receive Date: 20181010
  Receipt Date: 20181130
  Transmission Date: 20190205
  Serious: Yes (Hospitalization)
  Sender: FDA-Public Use
  Company Number: US-BAXTER-2018BAX025079

PATIENT
  Age: 16 Year
  Sex: Female
  Weight: 83.7 kg

DRUGS (24)
  1. ZOSYN [Suspect]
     Active Substance: PIPERACILLIN SODIUM\TAZOBACTAM SODIUM
     Route: 065
     Dates: end: 20180830
  2. TORADOL [Suspect]
     Active Substance: KETOROLAC TROMETHAMINE
     Indication: PYREXIA
     Route: 065
     Dates: start: 20180828, end: 20180828
  3. CLINDAMYCIN IN 0.9% SODIUM CHLORIDE INJECTION [Suspect]
     Active Substance: CLINDAMYCIN HYDROCHLORIDE
     Indication: CELLULITIS
  4. VANCOMYCIN INJECTION, USP [Suspect]
     Active Substance: VANCOMYCIN
     Indication: CELLULITIS
  5. METHOTREXATE. [Suspect]
     Active Substance: METHOTREXATE
     Dosage: TABLET, REGIMEN 2
     Route: 048
     Dates: start: 20181015
  6. MERCAPTOPURINE. [Suspect]
     Active Substance: MERCAPTOPURINE
     Dosage: TABLET, QD
     Route: 048
     Dates: start: 20180917, end: 20181001
  7. METHOTREXATE. [Suspect]
     Active Substance: METHOTREXATE
     Indication: ACUTE LYMPHOCYTIC LEUKAEMIA
     Dosage: TABLET, REGIMEN 1
     Route: 048
     Dates: start: 20180319, end: 20180826
  8. RUXOLITINIB [Suspect]
     Active Substance: RUXOLITINIB
     Dosage: INCB018424, DAYS 57-70, TABLET, QD, REGIMEN 2
     Route: 048
     Dates: start: 20181015
  9. CHLORHEXIDINE [Suspect]
     Active Substance: CHLORHEXIDINE
     Indication: PRODUCT USED FOR UNKNOWN INDICATION
     Dosage: WIPES
     Route: 061
  10. VINCRISTINE [Suspect]
     Active Substance: VINCRISTINE
     Indication: ACUTE LYMPHOCYTIC LEUKAEMIA
     Route: 042
     Dates: start: 20180917
  11. VANCOMYCIN INJECTION, USP [Suspect]
     Active Substance: VANCOMYCIN
     Indication: PYREXIA
     Route: 042
     Dates: start: 20180826, end: 20180830
  12. VINCRISTINE [Suspect]
     Active Substance: VINCRISTINE
     Route: 065
     Dates: start: 20181015
  13. RUXOLITINIB [Suspect]
     Active Substance: RUXOLITINIB
     Indication: ACUTE LYMPHOCYTIC LEUKAEMIA
     Dosage: INCB018424, DAYS 57-70, TABLET, QD
     Route: 048
     Dates: start: 20170619, end: 20180826
  14. ROCEPHIN [Suspect]
     Active Substance: CEFTRIAXONE SODIUM
     Indication: PYREXIA
     Route: 065
     Dates: start: 20180821, end: 20181001
  15. ZOSYN [Suspect]
     Active Substance: PIPERACILLIN SODIUM\TAZOBACTAM SODIUM
     Indication: PYREXIA
     Route: 042
     Dates: start: 20180826
  16. LINEZOLID. [Suspect]
     Active Substance: LINEZOLID
     Indication: PRODUCT USED FOR UNKNOWN INDICATION
     Route: 042
     Dates: start: 20180902, end: 20181010
  17. CLINDAMYCIN IN 0.9% SODIUM CHLORIDE INJECTION [Suspect]
     Active Substance: CLINDAMYCIN HYDROCHLORIDE
     Indication: PYREXIA
     Route: 042
     Dates: start: 20180827, end: 20180903
  18. MERCAPTOPURINE. [Suspect]
     Active Substance: MERCAPTOPURINE
     Indication: ACUTE LYMPHOCYTIC LEUKAEMIA
     Dosage: TABLET, QD
     Route: 048
     Dates: start: 20180312, end: 20180826
  19. PREDNISONE. [Suspect]
     Active Substance: PREDNISONE
     Indication: ACUTE LYMPHOCYTIC LEUKAEMIA
     Dosage: DAYS 57-61, TABLET, REGIMEN 1
     Route: 048
     Dates: start: 20170305
  20. ZYVOX [Suspect]
     Active Substance: LINEZOLID
     Indication: ARTHROPOD BITE
     Route: 042
     Dates: start: 20180910, end: 20180917
  21. ZYVOX [Suspect]
     Active Substance: LINEZOLID
     Indication: CELLULITIS
  22. ZOSYN [Suspect]
     Active Substance: PIPERACILLIN SODIUM\TAZOBACTAM SODIUM
     Indication: CELLULITIS
     Route: 065
     Dates: start: 20180826
  23. TORADOL [Suspect]
     Active Substance: KETOROLAC TROMETHAMINE
     Indication: CELLULITIS
  24. LINEZOLID. [Suspect]
     Active Substance: LINEZOLID
     Route: 048
     Dates: start: 20180907

REACTIONS (4)
  - Cellulitis [Recovered/Resolved]
  - Arthropod bite [Recovered/Resolved]
  - Erythema nodosum [Recovered/Resolved]
  - Acute kidney injury [Recovered/Resolved]

NARRATIVE: CASE EVENT DATE: 20180830
